FAERS Safety Report 9625678 (Version 4)
Quarter: 2014Q2

REPORT INFORMATION
  Report Type: Spontaneous
  Country: FR (occurrence: FR)
  Receive Date: 20131016
  Receipt Date: 20140509
  Transmission Date: 20141212
  Serious: Yes (Hospitalization, Other)
  Sender: FDA-Public Use
  Company Number: FR-UCBSA-099736

PATIENT
  Age: 62 Year
  Sex: Female
  Weight: 63 kg

DRUGS (7)
  1. CIMZIA [Suspect]
     Indication: RHEUMATOID ARTHRITIS
     Route: 058
     Dates: start: 20101003
  2. CIMZIA [Suspect]
     Indication: RHEUMATOID ARTHRITIS
     Route: 058
     Dates: start: 2012, end: 201307
  3. DOLIPRANE [Concomitant]
     Dosage: UNKNOWN DOSE
  4. VITAMIN D [Concomitant]
     Dosage: UNKNOWN DOSE
  5. LANSOPRAZOLE [Concomitant]
  6. PREDNISONE [Concomitant]
  7. LEXOMIL [Concomitant]

REACTIONS (4)
  - Hypoxia [Recovered/Resolved]
  - Sense of oppression [Recovered/Resolved]
  - Erysipelas [Unknown]
  - Dyspnoea [Recovered/Resolved]
